FAERS Safety Report 18928929 (Version 4)
Quarter: 2021Q3

REPORT INFORMATION
  Report Type: Spontaneous
  Country: US (occurrence: US)
  Receive Date: 20210223
  Receipt Date: 20210727
  Transmission Date: 20211014
  Serious: Yes (Other)
  Sender: FDA-Public Use
  Company Number: US-PFIZER INC-2021064376

PATIENT
  Age: 78 Year
  Sex: Female
  Weight: 67.13 kg

DRUGS (2)
  1. XELJANZ [Suspect]
     Active Substance: TOFACITINIB CITRATE
     Dosage: 5 MG, 2X/DAY IN THE MORNING AND AT NIGHT
     Route: 048
     Dates: start: 2021
  2. XELJANZ [Suspect]
     Active Substance: TOFACITINIB CITRATE
     Indication: COLITIS ULCERATIVE
     Dosage: 10 MG, 2X/DAY
     Route: 048

REACTIONS (14)
  - Paraesthesia [Not Recovered/Not Resolved]
  - Joint injury [Unknown]
  - Weight decreased [Unknown]
  - Gait disturbance [Unknown]
  - Peripheral swelling [Not Recovered/Not Resolved]
  - Fatigue [Unknown]
  - Asthenia [Unknown]
  - Malaise [Unknown]
  - Weight increased [Unknown]
  - Illness [Unknown]
  - Fall [Unknown]
  - Feeling hot [Not Recovered/Not Resolved]
  - Colitis ulcerative [Unknown]
  - Nausea [Unknown]

NARRATIVE: CASE EVENT DATE: 2021
